FAERS Safety Report 5429965-6 (Version None)
Quarter: 2007Q3

REPORT INFORMATION
  Report Type: 
  Country: None (occurrence: None)
  Receive Date: 20070829
  Receipt Date: 20070827
  Transmission Date: 20080115
  Serious: Yes (Other)
  Sender: FDA-Public Use
  Company Number: JP-BOEHRINGER INGELHEIM PHARMACEUTICALS, INC.-2007-BP-19973NB

PATIENT

DRUGS (1)
  1. SPIRIVA [Suspect]
     Route: 055
     Dates: start: 20070401

REACTIONS (1)
  - SKIN LACERATION [None]
